FAERS Safety Report 5818193-8 (Version None)
Quarter: 2008Q3

REPORT INFORMATION
  Report Type: 
  Country: None (occurrence: None)
  Receive Date: 20080722
  Receipt Date: 20071026
  Transmission Date: 20090109
  Serious: Yes (Hospitalization, Other)
  Sender: FDA-Public Use
  Company Number: FR-PFIZER INC-2007029861

PATIENT
  Sex: Male

DRUGS (5)
  1. CHANTIX [Suspect]
     Dates: start: 20070301, end: 20070411
  2. GLUCOPHAGE [Concomitant]
     Indication: TYPE 2 DIABETES MELLITUS
  3. INSULIN [Concomitant]
     Indication: TYPE 2 DIABETES MELLITUS
  4. PLAVIX [Concomitant]
  5. ALL OTHER THERAPEUTIC PRODUCTS [Concomitant]

REACTIONS (4)
  - ACUTE HEPATIC FAILURE [None]
  - CIRRHOSIS ALCOHOLIC [None]
  - HEPATIC NEOPLASM MALIGNANT [None]
  - HEPATITIS ALCOHOLIC [None]
